FAERS Safety Report 21062469 (Version 1)
Quarter: 2022Q3

REPORT INFORMATION
  Report Type: Spontaneous
  Country: MX (occurrence: MX)
  Receive Date: 20220711
  Receipt Date: 20220711
  Transmission Date: 20221027
  Serious: Yes (Other)
  Sender: FDA-Public Use
  Company Number: MX-BAUSCH-BL-2022-017101

PATIENT
  Age: 39 Year
  Sex: Female
  Weight: 67 kg

DRUGS (1)
  1. FLUOROURACIL [Suspect]
     Active Substance: FLUOROURACIL
     Indication: Papilloma viral infection
     Dosage: 1 APPLICATION
     Route: 067
     Dates: start: 20220701, end: 20220701

REACTIONS (1)
  - Vulvovaginal injury [Recovered/Resolved]

NARRATIVE: CASE EVENT DATE: 20220701
